FAERS Safety Report 5065767-0 (Version None)
Quarter: 2006Q3

REPORT INFORMATION
  Report Type: 
  Country: None (occurrence: None)
  Receive Date: 20060731
  Receipt Date: 20060719
  Transmission Date: 20061208
  Serious: Yes (Hospitalization)
  Sender: FDA-Public Use
  Company Number: US-ROCHE-456047

PATIENT
  Age: 52 Year
  Sex: Female
  Weight: 77.6 kg

DRUGS (7)
  1. ZENAPAX [Suspect]
     Indication: MULTIPLE SCLEROSIS
     Dosage: DOSE REPORTED AS 1X.
     Route: 058
     Dates: start: 20050628, end: 20050628
  2. ZENAPAX [Suspect]
     Dosage: TAKEN EVERY WEEK.
     Route: 058
     Dates: start: 20050711, end: 20051115
  3. BETASERON [Concomitant]
     Dates: start: 19940615
  4. GABAPENTIN [Concomitant]
     Dates: start: 19990215
  5. TROSPIUM [Concomitant]
     Dates: start: 20060615
  6. PREMPRO [Concomitant]
     Dates: start: 20010615
  7. CIPROFLOXACIN [Concomitant]
     Dates: start: 20060103

REACTIONS (4)
  - ESCHERICHIA INFECTION [None]
  - HYPOTENSION [None]
  - TACHYCARDIA [None]
  - UROSEPSIS [None]
